FAERS Safety Report 19611369 (Version 2)
Quarter: 2021Q3

REPORT INFORMATION
  Report Type: Report from Study
  Country: US (occurrence: US)
  Receive Date: 20210726
  Receipt Date: 20210806
  Transmission Date: 20211014
  Serious: Yes (Hospitalization)
  Sender: FDA-Public Use
  Company Number: US-EISAI MEDICAL RESEARCH-EC-2021-096743

PATIENT
  Age: 60 Year
  Sex: Female

DRUGS (11)
  1. XARELTO [Concomitant]
     Active Substance: RIVAROXABAN
  2. NEXIUM [Concomitant]
     Active Substance: ESOMEPRAZOLE MAGNESIUM
  3. LOSARTAN POTASSIUM. [Concomitant]
     Active Substance: LOSARTAN POTASSIUM
  4. GABAPENTIN. [Concomitant]
     Active Substance: GABAPENTIN
  5. LENVIMA [Suspect]
     Active Substance: LENVATINIB
     Indication: ENDOMETRIAL CANCER
     Route: 048
     Dates: start: 20210529, end: 2021
  6. METOPROLOL SUCCINATE. [Concomitant]
     Active Substance: METOPROLOL SUCCINATE
  7. LENVIMA [Suspect]
     Active Substance: LENVATINIB
     Route: 048
     Dates: start: 2021, end: 2021
  8. COMPAZINE [Concomitant]
     Active Substance: PROCHLORPERAZINE MALEATE
  9. ZOFRAN [Concomitant]
     Active Substance: ONDANSETRON HYDROCHLORIDE
  10. KEYTRUDA [Concomitant]
     Active Substance: PEMBROLIZUMAB
  11. METFORMIN [Concomitant]
     Active Substance: METFORMIN HYDROCHLORIDE

REACTIONS (2)
  - Blood pressure decreased [Unknown]
  - Dehydration [Unknown]

NARRATIVE: CASE EVENT DATE: 2021
